FAERS Safety Report 4548058-3 (Version None)
Quarter: 2004Q4

REPORT INFORMATION
  Report Type: 
  Country: None (occurrence: None)
  Receive Date: 20041220
  Receipt Date: 20040426
  Transmission Date: 20050328
  Serious: Yes (Hospitalization)
  Sender: FDA-Public Use
  Company Number: USA040465809

PATIENT
  Age: 81 Year
  Sex: Male
  Weight: 61 kg

DRUGS (2)
  1. HUMULIN N [Suspect]
     Dosage: 24 U DAY
     Dates: start: 19940101
  2. NOVOLIN R [Concomitant]

REACTIONS (5)
  - BLOOD GLUCOSE DECREASED [None]
  - BLOOD GLUCOSE INCREASED [None]
  - HYPOACUSIS [None]
  - NASOPHARYNGITIS [None]
  - UNDERWEIGHT [None]
